FAERS Safety Report 22385949 (Version 3)
Quarter: 2025Q3

REPORT INFORMATION
  Report Type: Spontaneous
  Country: JP (occurrence: JP)
  Receive Date: 20230530
  Receipt Date: 20250724
  Transmission Date: 20251020
  Serious: Yes (Other)
  Sender: ELI LILLY AND COMPANY
  Company Number: JP-ELI_LILLY_AND_COMPANY-JP202305012375

PATIENT
  Age: 69 Year
  Sex: Female

DRUGS (2)
  1. VERZENIO [Suspect]
     Active Substance: ABEMACICLIB
     Indication: Breast cancer stage III
     Dosage: 300 MG, DAILY
     Route: 048
     Dates: start: 20220831
  2. LETROZOLE [Concomitant]
     Active Substance: LETROZOLE
     Indication: Breast cancer stage III
     Route: 048
     Dates: start: 20220831

REACTIONS (7)
  - Rhabdomyolysis [Recovered/Resolved with Sequelae]
  - Dysuria [Not Recovered/Not Resolved]
  - Magnetic resonance imaging abnormal [Unknown]
  - Liver function test abnormal [Unknown]
  - Muscular weakness [Not Recovered/Not Resolved]
  - Diarrhoea [Unknown]
  - Platelet count decreased [Unknown]
